FAERS Safety Report 10908386 (Version 4)
Quarter: 2015Q2

REPORT INFORMATION
  Report Type: Spontaneous
  Country: US (occurrence: US)
  Receive Date: 20150312
  Receipt Date: 20150518
  Transmission Date: 20150821
  Serious: No
  Sender: FDA-Public Use
  Company Number: US-SHIRE-US201502102

PATIENT
  Age: 5 Year
  Sex: Male
  Weight: 19.48 kg

DRUGS (1)
  1. AMPHETAMINE SALTS [Suspect]
     Active Substance: AMPHETAMINE ASPARTATE\AMPHETAMINE SULFATE\DEXTROAMPHETAMINE SACCHARATE\DEXTROAMPHETAMINE SULFATE
     Indication: ATTENTION DEFICIT/HYPERACTIVITY DISORDER
     Dosage: 5 MG, 1X/DAY:QD
     Route: 048
     Dates: start: 20150305, end: 20150305

REACTIONS (7)
  - Depressed mood [Recovered/Resolved]
  - Vomiting [Recovered/Resolved]
  - Emotional disorder [Recovering/Resolving]
  - Crying [Recovering/Resolving]
  - Disturbance in social behaviour [Recovering/Resolving]
  - Abdominal discomfort [Recovering/Resolving]
  - Product use issue [Recovered/Resolved]

NARRATIVE: CASE EVENT DATE: 20150305
